FAERS Safety Report 4428171-1 (Version None)
Quarter: 2004Q3

REPORT INFORMATION
  Report Type: 
  Country: None (occurrence: None)
  Receive Date: 20040726
  Receipt Date: 20040319
  Transmission Date: 20050211
  Serious: No
  Sender: FDA-Public Use
  Company Number: USA040361905

PATIENT
  Age: 78 Year
  Sex: Female
  Weight: 43 kg

DRUGS (6)
  1. FORTEO [Suspect]
     Indication: OSTEOPOROSIS
     Dosage: 20 UG/1 DAY
     Dates: start: 20040311
  2. EVISTA [Suspect]
     Dates: start: 20040201
  3. PREDNISONE [Concomitant]
  4. ZINC [Concomitant]
  5. VITAMIN D [Concomitant]
  6. UNIRETIC [Concomitant]

REACTIONS (5)
  - BONE PAIN [None]
  - DIZZINESS [None]
  - HEART RATE INCREASED [None]
  - HYPERHIDROSIS [None]
  - NECK PAIN [None]
